FAERS Safety Report 23149461 (Version 11)
Quarter: 2025Q3

REPORT INFORMATION
  Report Type: Spontaneous
  Country: US (occurrence: US)
  Receive Date: 20231106
  Receipt Date: 20250702
  Transmission Date: 20251020
  Serious: Yes (Hospitalization, Other)
  Sender: SK LIFE SCIENCE
  Company Number: US-SK LIFE SCIENCE, INC.-SKPVG-2022-000945

PATIENT

DRUGS (34)
  1. XCOPRI [Suspect]
     Active Substance: CENOBAMATE
     Indication: Aura
     Route: 048
  2. XCOPRI [Suspect]
     Active Substance: CENOBAMATE
     Indication: Epilepsy
     Route: 048
     Dates: start: 20210101
  3. XCOPRI [Suspect]
     Active Substance: CENOBAMATE
     Indication: Seizure
     Route: 048
     Dates: start: 202102
  4. XCOPRI [Suspect]
     Active Substance: CENOBAMATE
     Route: 048
     Dates: start: 2022, end: 2022
  5. XCOPRI [Suspect]
     Active Substance: CENOBAMATE
     Dosage: 200 MG ONCE DAILY AT BEDTIME
     Route: 048
     Dates: start: 20220414, end: 20221215
  6. XCOPRI [Suspect]
     Active Substance: CENOBAMATE
     Dosage: 250 MILLIGRAM, HAVE BEEN ON THE EXTRA 50MG, ONCE DAILY AT NIGHT
     Route: 048
     Dates: end: 20230407
  7. XCOPRI [Suspect]
     Active Substance: CENOBAMATE
     Dosage: 200 MILLIGRAM, ONCE DAILY AT NIGHT
     Route: 048
     Dates: start: 20230408
  8. XCOPRI [Suspect]
     Active Substance: CENOBAMATE
     Dosage: REGULAR 250MG MAINTENANCE DOSE
     Route: 048
     Dates: start: 20230420
  9. XCOPRI [Suspect]
     Active Substance: CENOBAMATE
     Dosage: 300 MILLIGRAM, QD
     Route: 048
     Dates: start: 202306
  10. XCOPRI [Suspect]
     Active Substance: CENOBAMATE
     Dosage: 250 MILLIGRAM, EVERY NIGHT AT BEDTIME
     Route: 048
     Dates: start: 202310
  11. XCOPRI [Suspect]
     Active Substance: CENOBAMATE
     Dosage: 250 MILLIGRAM, EVERY NIGHT AT BEDTIME
     Route: 048
     Dates: start: 202310
  12. XCOPRI [Suspect]
     Active Substance: CENOBAMATE
     Dosage: 250MG ONCE DAILY (ONE 100MG TAB AND ONE 150MG TAB)
     Route: 048
     Dates: start: 202310
  13. XCOPRI [Suspect]
     Active Substance: CENOBAMATE
     Dosage: 250MG ONCE DAILY (ONE 100MG TAB AND ONE 150MG TAB)
     Route: 048
     Dates: start: 202310
  14. XCOPRI [Suspect]
     Active Substance: CENOBAMATE
     Dosage: 300 MILLIGRAM, QD (TWO 150MG TABLETS AT NIGHT)
     Route: 048
     Dates: start: 20240614, end: 2024
  15. XCOPRI [Suspect]
     Active Substance: CENOBAMATE
     Dosage: 200 MILLIGRAM, DAILY AT NIGHT
     Route: 048
     Dates: start: 2024
  16. XCOPRI [Suspect]
     Active Substance: CENOBAMATE
     Dosage: 150 MILLIGRAM, ONE AT NIGHT
     Route: 048
     Dates: start: 20250619
  17. TEGRETOL [Suspect]
     Active Substance: CARBAMAZEPINE
     Indication: Product used for unknown indication
     Dosage: THREE 200 MG TABLETS
     Route: 065
     Dates: start: 1981
  18. TEGRETOL [Suspect]
     Active Substance: CARBAMAZEPINE
     Route: 065
  19. CLONAZEPAM [Suspect]
     Active Substance: CLONAZEPAM
     Indication: Epilepsy
     Route: 065
     Dates: start: 2013
  20. CLONAZEPAM [Suspect]
     Active Substance: CLONAZEPAM
     Dosage: 100MG 1 TABLET IN AFTERNOON
     Route: 065
  21. LAMICTAL [Concomitant]
     Active Substance: LAMOTRIGINE
     Indication: Epilepsy
     Route: 065
  22. LAMICTAL [Concomitant]
     Active Substance: LAMOTRIGINE
     Dosage: 300 MILLIGRAM, TWO TIMES A DAY
     Route: 065
  23. LAMICTAL [Concomitant]
     Active Substance: LAMOTRIGINE
     Route: 065
  24. ATORVASTATIN [Concomitant]
     Active Substance: ATORVASTATIN
     Indication: Blood cholesterol increased
     Route: 065
  25. HUMIRA [Concomitant]
     Active Substance: ADALIMUMAB
     Indication: Product used for unknown indication
     Route: 065
  26. SINGULAIR [Concomitant]
     Active Substance: MONTELUKAST SODIUM
     Indication: Asthma
     Route: 065
  27. ADVAIR HFA [Concomitant]
     Active Substance: FLUTICASONE PROPIONATE\SALMETEROL XINAFOATE
     Indication: Product used for unknown indication
     Route: 065
  28. VENTOLIN [Concomitant]
     Active Substance: ALBUTEROL SULFATE
     Indication: Product used for unknown indication
     Route: 065
  29. CALCIUM [Concomitant]
     Active Substance: CALCIUM
     Indication: Product used for unknown indication
     Route: 065
  30. TOPROL XL [Concomitant]
     Active Substance: METOPROLOL SUCCINATE
     Indication: Blood pressure abnormal
     Route: 065
  31. CYMBALTA [Concomitant]
     Active Substance: DULOXETINE HYDROCHLORIDE
     Indication: Product used for unknown indication
     Dosage: 60 MILLIGRAM, TWO A DAY
     Route: 065
  32. OMEPRAZOLE [Concomitant]
     Active Substance: OMEPRAZOLE
     Indication: Product used for unknown indication
     Dosage: EVERY OTHER DAY , IN THE AFTERNOON
     Route: 065
  33. ASPIRIN [Concomitant]
     Active Substance: ASPIRIN
     Indication: Product used for unknown indication
     Dosage: TWO TIMES A DAY
     Route: 065
  34. IRON [Concomitant]
     Active Substance: IRON
     Indication: Product used for unknown indication
     Route: 065

REACTIONS (31)
  - Staphylococcal infection [Recovering/Resolving]
  - COVID-19 [Recovered/Resolved]
  - Loss of consciousness [Recovered/Resolved]
  - Urinary tract infection [Unknown]
  - Localised infection [Recovered/Resolved]
  - Fall [Recovered/Resolved]
  - Feeling abnormal [Recovered/Resolved]
  - Aura [Recovered/Resolved]
  - Drug titration error [Recovered/Resolved]
  - Off label use [Not Recovered/Not Resolved]
  - Therapeutic product effect decreased [Recovered/Resolved]
  - Product prescribing error [Recovered/Resolved]
  - Incorrect dose administered [Recovered/Resolved]
  - Aura [Recovered/Resolved]
  - Condition aggravated [Recovered/Resolved]
  - Dissociation [Recovered/Resolved]
  - Feeling abnormal [Unknown]
  - Drug intolerance [Recovered/Resolved]
  - Product dose omission issue [Recovered/Resolved]
  - Incorrect dose administered [Not Recovered/Not Resolved]
  - Oropharyngeal discomfort [Unknown]
  - Dysphonia [Unknown]
  - Aura [Not Recovered/Not Resolved]
  - Cataract [Recovered/Resolved]
  - Dehydration [Unknown]
  - Malaise [Recovered/Resolved]
  - Fatigue [Recovered/Resolved]
  - Dizziness [Unknown]
  - Somnolence [Unknown]
  - Nasopharyngitis [Recovering/Resolving]
  - Gait disturbance [Unknown]

NARRATIVE: CASE EVENT DATE: 20230101
